FAERS Safety Report 24026802 (Version 3)
Quarter: 2024Q3

REPORT INFORMATION
  Report Type: Report from Study
  Country: CN (occurrence: CN)
  Receive Date: 20240628
  Receipt Date: 20240710
  Transmission Date: 20241017
  Serious: No
  Sender: ROCHE
  Company Number: CN-ROCHE-3350011

PATIENT
  Age: 33 Year
  Sex: Male
  Weight: 77.0 kg

DRUGS (35)
  1. ALECTINIB [Suspect]
     Active Substance: ALECTINIB
     Indication: Lung cancer metastatic
     Route: 048
     Dates: start: 20210929
  2. IBANDRONATE SODIUM [Concomitant]
     Active Substance: IBANDRONATE SODIUM
     Route: 042
     Dates: start: 20220117, end: 20220117
  3. LOFEXIDINE [Concomitant]
     Active Substance: LOFEXIDINE HYDROCHLORIDE
     Route: 048
     Dates: start: 20220118, end: 20220120
  4. CIMETIDINE [Concomitant]
     Active Substance: CIMETIDINE
     Indication: Gastric pH increased
     Route: 042
     Dates: start: 20220414, end: 20220418
  5. CIMETIDINE [Concomitant]
     Active Substance: CIMETIDINE
     Route: 042
     Dates: start: 20220505, end: 20220509
  6. CIMETIDINE [Concomitant]
     Active Substance: CIMETIDINE
     Route: 042
     Dates: start: 20220531, end: 20220602
  7. CIMETIDINE [Concomitant]
     Active Substance: CIMETIDINE
     Route: 042
     Dates: start: 20220621, end: 20220623
  8. ONDANSETRON HYDROCHLORIDE [Concomitant]
     Active Substance: ONDANSETRON HYDROCHLORIDE
     Indication: Vomiting
     Dosage: FREQUENCY TEXT:PRN
     Route: 042
     Dates: start: 20220414, end: 20220418
  9. ONDANSETRON HYDROCHLORIDE [Concomitant]
     Active Substance: ONDANSETRON HYDROCHLORIDE
     Dosage: FREQUENCY TEXT:PRN
     Route: 042
     Dates: start: 20220605, end: 20220609
  10. ONDANSETRON HYDROCHLORIDE [Concomitant]
     Active Substance: ONDANSETRON HYDROCHLORIDE
     Dosage: FREQUENCY TEXT:PRN
     Route: 042
     Dates: start: 20220531, end: 20220602
  11. ONDANSETRON HYDROCHLORIDE [Concomitant]
     Active Substance: ONDANSETRON HYDROCHLORIDE
     Route: 050
     Dates: start: 20220601, end: 20220602
  12. DEXAMETHASONE ACETATE [Concomitant]
     Active Substance: DEXAMETHASONE ACETATE
     Indication: Vomiting
     Route: 048
     Dates: start: 20220414, end: 20220418
  13. DEXAMETHASONE ACETATE [Concomitant]
     Active Substance: DEXAMETHASONE ACETATE
     Route: 048
     Dates: start: 20220507, end: 20220509
  14. DEXAMETHASONE ACETATE [Concomitant]
     Active Substance: DEXAMETHASONE ACETATE
     Route: 048
     Dates: start: 20220531, end: 20220602
  15. DEXAMETHASONE ACETATE [Concomitant]
     Active Substance: DEXAMETHASONE ACETATE
     Route: 048
     Dates: start: 20220621, end: 20220622
  16. APREPITANT [Concomitant]
     Active Substance: APREPITANT
     Indication: Vomiting
     Dosage: 1 CAPSULE
     Route: 048
     Dates: start: 20220414, end: 20220418
  17. APREPITANT [Concomitant]
     Active Substance: APREPITANT
     Dosage: 1 CAPSULE
     Route: 048
     Dates: start: 20220506, end: 20220509
  18. OMEPRAZOLE SODIUM [Concomitant]
     Active Substance: OMEPRAZOLE SODIUM
     Indication: Gastric pH increased
     Route: 042
     Dates: start: 20220505, end: 20220509
  19. OMEPRAZOLE SODIUM [Concomitant]
     Active Substance: OMEPRAZOLE SODIUM
     Route: 042
     Dates: start: 20220531, end: 20220602
  20. OMEPRAZOLE SODIUM [Concomitant]
     Active Substance: OMEPRAZOLE SODIUM
     Route: 042
     Dates: start: 20220414, end: 20220418
  21. DEXAMETHASONE SODIUM PHOSPHATE [Concomitant]
     Active Substance: DEXAMETHASONE PHOSPHATE\DEXAMETHASONE SODIUM PHOSPHATE
     Indication: Vomiting
     Dosage: FREQUENCY TEXT:PRN
     Route: 042
     Dates: start: 20220414, end: 20220418
  22. DEXAMETHASONE SODIUM PHOSPHATE [Concomitant]
     Active Substance: DEXAMETHASONE PHOSPHATE\DEXAMETHASONE SODIUM PHOSPHATE
     Dosage: FREQUENCY TEXT:PRN
     Route: 042
     Dates: start: 20220506, end: 20220509
  23. DEXAMETHASONE SODIUM PHOSPHATE [Concomitant]
     Active Substance: DEXAMETHASONE PHOSPHATE\DEXAMETHASONE SODIUM PHOSPHATE
     Dosage: FREQUENCY TEXT:PRN
     Route: 042
     Dates: start: 20220531, end: 20220602
  24. DEXAMETHASONE SODIUM PHOSPHATE [Concomitant]
     Active Substance: DEXAMETHASONE PHOSPHATE\DEXAMETHASONE SODIUM PHOSPHATE
     Dosage: FREQUENCY TEXT:PRN
     Route: 042
     Dates: start: 20220601, end: 20220602
  25. DEXAMETHASONE SODIUM PHOSPHATE [Concomitant]
     Active Substance: DEXAMETHASONE PHOSPHATE\DEXAMETHASONE SODIUM PHOSPHATE
     Route: 050
     Dates: start: 20220508, end: 20220509
  26. VITAMIN B6 [Concomitant]
     Active Substance: PYRIDOXINE HYDROCHLORIDE
     Indication: Vomiting
     Route: 042
     Dates: start: 20220531, end: 20220602
  27. VITAMIN B6 [Concomitant]
     Active Substance: PYRIDOXINE HYDROCHLORIDE
     Route: 042
     Dates: start: 20220621, end: 20220623
  28. PROMETHAZINE HYDROCHLORIDE [Concomitant]
     Active Substance: PROMETHAZINE HYDROCHLORIDE
     Indication: Vomiting
     Route: 030
     Dates: start: 20220414, end: 20220418
  29. PROMETHAZINE HYDROCHLORIDE [Concomitant]
     Active Substance: PROMETHAZINE HYDROCHLORIDE
     Route: 030
     Dates: start: 20220507, end: 20220507
  30. PROMETHAZINE HYDROCHLORIDE [Concomitant]
     Active Substance: PROMETHAZINE HYDROCHLORIDE
     Route: 030
     Dates: start: 20220601, end: 20220601
  31. APREPITANT [Concomitant]
     Active Substance: APREPITANT
     Indication: Vomiting
     Dosage: 1 TABLET
     Route: 048
     Dates: start: 20220531, end: 20220602
  32. APREPITANT [Concomitant]
     Active Substance: APREPITANT
     Dosage: 1 TABLET
     Route: 048
     Dates: start: 20220621, end: 20220623
  33. ESOMEPRAZOLE SODIUM [Concomitant]
     Active Substance: ESOMEPRAZOLE SODIUM
     Route: 042
     Dates: start: 20220621, end: 20220623
  34. SILYBIN [Concomitant]
     Route: 048
     Dates: start: 20220621, end: 20220623
  35. HERBALS\DIAMMONIUM GLYCYRRHIZINATE [Concomitant]
     Active Substance: HERBALS\DIAMMONIUM GLYCYRRHIZINATE
     Route: 048
     Dates: start: 20220621, end: 20220623

REACTIONS (1)
  - Platelet count increased [Recovered/Resolved]

NARRATIVE: CASE EVENT DATE: 20220214
